FAERS Safety Report 6878768-4 (Version None)
Quarter: 2010Q3

REPORT INFORMATION
  Report Type: 
  Country: None (occurrence: None)
  Receive Date: 20100728
  Receipt Date: 20081215
  Transmission Date: 20110219
  Serious: Yes (Other)
  Sender: FDA-Public Use
  Company Number: US-PFIZER INC-2008085990

PATIENT
  Sex: Female
  Weight: 58.503 kg

DRUGS (8)
  1. CHANTIX [Suspect]
     Indication: SMOKING CESSATION THERAPY
     Dosage: 0.5 MG, UNK
     Dates: start: 20071101, end: 20081103
  2. PREVACID [Concomitant]
     Dosage: 30 MG, 2X/DAY
  3. DICYCLOMINE [Concomitant]
     Indication: IRRITABLE BOWEL SYNDROME
     Dosage: 10 MG, 3X/DAY
  4. ZOCOR [Concomitant]
     Dosage: 80 MG, 1X/DAY
  5. DETROL LA [Concomitant]
     Dosage: 4 MG, 1X/DAY
  6. PREMPRO [Concomitant]
  7. ULTRAM [Concomitant]
     Dosage: 50 MG, UNK
  8. XANAX [Concomitant]
     Dosage: 0.25 MG, UNK

REACTIONS (17)
  - ABDOMINAL PAIN [None]
  - ANXIETY [None]
  - BLOOD THYROID STIMULATING HORMONE DECREASED [None]
  - CANDIDIASIS [None]
  - CHEST PAIN [None]
  - DEPRESSION [None]
  - ELECTROCARDIOGRAM AMBULATORY ABNORMAL [None]
  - GASTROOESOPHAGEAL REFLUX DISEASE [None]
  - HEART RATE IRREGULAR [None]
  - HYPOTHYROIDISM [None]
  - IODINE UPTAKE DECREASED [None]
  - MEDICATION ERROR [None]
  - PALPITATIONS [None]
  - SCIATICA [None]
  - SUICIDAL IDEATION [None]
  - THYROID FUNCTION TEST ABNORMAL [None]
  - TOBACCO USER [None]
